FAERS Safety Report 13133658 (Version 2)
Quarter: 2017Q2

REPORT INFORMATION
  Report Type: Spontaneous
  Country: US (occurrence: US)
  Receive Date: 20170120
  Receipt Date: 20170419
  Transmission Date: 20170830
  Serious: Yes (Other)
  Sender: FDA-Public Use
  Company Number: US-OTSUKA-2016_024281

PATIENT
  Age: 69 Year
  Sex: Female
  Weight: 64.85 kg

DRUGS (3)
  1. INTUNIV [Concomitant]
     Active Substance: GUANFACINE HYDROCHLORIDE
     Indication: PRODUCT USED FOR UNKNOWN INDICATION
     Dosage: UNK
     Route: 065
  2. REXULTI [Suspect]
     Active Substance: BREXPIPRAZOLE
     Indication: ADJUVANT THERAPY
     Dosage: 2 MG, QD
     Route: 048
     Dates: start: 20160607, end: 20160823
  3. REXULTI [Suspect]
     Active Substance: BREXPIPRAZOLE
     Dosage: 0.25 MG, UNK
     Route: 065
     Dates: start: 201603, end: 2016

REACTIONS (4)
  - Musculoskeletal stiffness [Recovered/Resolved]
  - Akathisia [Recovered/Resolved]
  - Muscle rigidity [Recovered/Resolved]
  - Underdose [Unknown]

NARRATIVE: CASE EVENT DATE: 20160823
